FAERS Safety Report 24891202 (Version 4)
Quarter: 2025Q1

REPORT INFORMATION
  Report Type: Report from Study
  Country: US (occurrence: US)
  Receive Date: 20250127
  Receipt Date: 20250313
  Transmission Date: 20250409
  Serious: Yes (Hospitalization, Other)
  Sender: PFIZER
  Company Number: US-PFIZER INC-202500015383

PATIENT
  Age: 79 Year
  Sex: Female

DRUGS (8)
  1. LORBRENA [Suspect]
     Active Substance: LORLATINIB
     Indication: Non-small cell lung cancer
     Dosage: 100 MG A DAY
     Dates: start: 202410
  2. LORBRENA [Suspect]
     Active Substance: LORLATINIB
     Dosage: TAKE TWO TABLETS BY MOUTH DAILY TO TOTAL 50MG BY MOUTH EACH DAY. TAKE WHOLE WITH WATER, WITH OR WIT
     Route: 048
  3. BIOTIN [Concomitant]
     Active Substance: BIOTIN
  4. ESOMEPRAZOLE MAGNESIUM [Concomitant]
     Active Substance: ESOMEPRAZOLE MAGNESIUM
  5. EZETIMIBE [Concomitant]
     Active Substance: EZETIMIBE
  6. METFORMIN HYDROCHLORIDE [Concomitant]
     Active Substance: METFORMIN HYDROCHLORIDE
  7. ROSUVASTATIN CALCIUM [Concomitant]
     Active Substance: ROSUVASTATIN CALCIUM
  8. VITAMIN D3 [Concomitant]
     Active Substance: CHOLECALCIFEROL

REACTIONS (12)
  - Hallucination [Recovered/Resolved]
  - Hip fracture [Unknown]
  - Diarrhoea [Recovered/Resolved]
  - Asthenia [Recovered/Resolved]
  - Decreased appetite [Recovered/Resolved]
  - Lymphoedema [Unknown]
  - Swollen tongue [Unknown]
  - Speech disorder [Unknown]
  - Taste disorder [Unknown]
  - Blood cholesterol increased [Unknown]
  - Vertigo [Unknown]
  - Sinus disorder [Unknown]
